FAERS Safety Report 18406649 (Version 1)
Quarter: 2020Q4

REPORT INFORMATION
  Report Type: Other
  Country: CA (occurrence: CA)
  Receive Date: 20201021
  Receipt Date: 20201021
  Transmission Date: 20210114
  Serious: Yes (Other)
  Sender: FDA-Public Use
  Company Number: CA-CELLTRION INC.-2020CA029008

PATIENT

DRUGS (19)
  1. RITUXIMAB (UNKNOWN) [Suspect]
     Active Substance: RITUXIMAB
     Indication: RHEUMATOID ARTHRITIS
     Dosage: 1000 MILLIGRAM, 1 EVERY 15 DAYS
     Route: 042
  2. OXAZEPAM. [Concomitant]
     Active Substance: OXAZEPAM
  3. HYDROCHLOROTHIAZIDE. [Concomitant]
     Active Substance: HYDROCHLOROTHIAZIDE
  4. RITUXIMAB (UNKNOWN) [Suspect]
     Active Substance: RITUXIMAB
     Dosage: 500 MILLIGRAM, 1 EVERY 15 DAYS
     Route: 042
  5. GABAPENTIN. [Concomitant]
     Active Substance: GABAPENTIN
  6. POTASSIUM CHLORIDE. [Concomitant]
     Active Substance: POTASSIUM CHLORIDE
  7. TYLENOL [Concomitant]
     Active Substance: ACETAMINOPHEN
     Indication: PREMEDICATION
     Dosage: 65 MILLIGRAM, 1 EVERY 15 DAYS
     Route: 048
  8. DOCUSATE [Concomitant]
     Active Substance: DOCUSATE
  9. ELAVIL [Concomitant]
     Active Substance: AMITRIPTYLINE HYDROCHLORIDE
  10. METHYLPREDNISOLONE SODIUM SUCCINATE. [Concomitant]
     Active Substance: METHYLPREDNISOLONE SODIUM SUCCINATE
     Indication: PREMEDICATION
     Dosage: 100 MILLIGRAM, 1 EVERY 15 DAYS
     Route: 042
  11. RIVA-SENNA [Concomitant]
  12. PREMARIN [Concomitant]
     Active Substance: ESTROGENS, CONJUGATED
  13. BENADRYL [Concomitant]
     Active Substance: DIPHENHYDRAMINE HYDROCHLORIDE
     Indication: PREMEDICATION
     Dosage: 50 MILLIGRAM, 1 EVERY 15 DAYS
     Route: 048
  14. EZETROL [Concomitant]
     Active Substance: EZETIMIBE
  15. M-ESLON [Concomitant]
     Active Substance: MORPHINE SULFATE
  16. OMEPRAZOLE. [Concomitant]
     Active Substance: OMEPRAZOLE
  17. RIVA DUTASTERIDE [Concomitant]
  18. STATEX [Concomitant]
  19. RITUXIMAB (UNKNOWN) [Suspect]
     Active Substance: RITUXIMAB
     Indication: MYOSITIS
     Dosage: 1000 MILLIGRAM, 1 EVERY 15 DAYS
     Route: 042

REACTIONS (3)
  - Cholelithiasis [Recovered/Resolved]
  - Off label use [Recovered/Resolved]
  - Product use in unapproved indication [Recovered/Resolved]
